FAERS Safety Report 4604408-0 (Version None)
Quarter: 2005Q1

REPORT INFORMATION
  Report Type: 
  Country: None (occurrence: None)
  Receive Date: 20050309
  Receipt Date: 20050309
  Transmission Date: 20050727
  Serious: No
  Sender: FDA-Public Use
  Company Number: None

PATIENT
  Age: 55 Year
  Sex: Male
  Weight: 99.7913 kg

DRUGS (2)
  1. GABATRIL 2 MG [Suspect]
     Indication: GENERALISED ANXIETY DISORDER
     Dosage: 2 MG QD ORALLY
     Route: 048
     Dates: start: 20050101, end: 20050201
  2. GABATRIL 2 MG [Suspect]
     Indication: PANIC ATTACK
     Dosage: 2 MG QD ORALLY
     Route: 048
     Dates: start: 20050101, end: 20050201

REACTIONS (2)
  - MYOCLONUS [None]
  - TREMOR [None]
